FAERS Safety Report 5692677-8 (Version None)
Quarter: 2008Q2

REPORT INFORMATION
  Report Type: 
  Country: None (occurrence: None)
  Receive Date: 20080402
  Receipt Date: 20080327
  Transmission Date: 20081010
  Serious: Yes (Death)
  Sender: FDA-Public Use
  Company Number: US-GENENTECH-258425

PATIENT

DRUGS (3)
  1. BEVACIZUMAB [Suspect]
     Indication: GLIOMA
     Dosage: 10 MG/KG, DAYS 1+15
     Route: 042
     Dates: start: 20080107
  2. ENZASTAURIN [Suspect]
     Indication: GLIOMA
     Dosage: 1125 MG, SINGLE
     Route: 048
     Dates: start: 20080107
  3. ENZASTAURIN [Suspect]
     Dosage: 875 MG, QD
     Route: 048

REACTIONS (1)
  - SUDDEN DEATH [None]
